FAERS Safety Report 9065302 (Version 1)
Quarter: 2013Q1

REPORT INFORMATION
  Report Type: Report from Study
  Country: US (occurrence: US)
  Receive Date: 20130131
  Receipt Date: 20130131
  Transmission Date: 20140127
  Serious: No
  Sender: FDA-Public Use
  Company Number: US-ABBOTT-12P-163-1018539-00

PATIENT
  Age: 38 Year
  Sex: Female
  Weight: 113.5 kg

DRUGS (8)
  1. HUMIRA [Suspect]
     Indication: RHEUMATOID ARTHRITIS
     Dates: start: 20121119
  2. HYDROXYCHLOROQUINE [Concomitant]
     Indication: PRODUCT USED FOR UNKNOWN INDICATION
  3. LISINOPRIL [Concomitant]
     Indication: PRODUCT USED FOR UNKNOWN INDICATION
  4. METFORMIN [Concomitant]
     Indication: PRODUCT USED FOR UNKNOWN INDICATION
  5. PIROXICAM [Concomitant]
     Indication: PRODUCT USED FOR UNKNOWN INDICATION
  6. PREDNISONE [Concomitant]
     Indication: PRODUCT USED FOR UNKNOWN INDICATION
  7. SIMVASTATIN [Concomitant]
     Indication: PRODUCT USED FOR UNKNOWN INDICATION
  8. VENLAFAXINE [Concomitant]
     Indication: PRODUCT USED FOR UNKNOWN INDICATION

REACTIONS (3)
  - Joint lock [Unknown]
  - Fall [Not Recovered/Not Resolved]
  - Pain [Not Recovered/Not Resolved]
